FAERS Safety Report 6486968-0 (Version None)
Quarter: 2009Q4

REPORT INFORMATION
  Report Type: 
  Country: None (occurrence: None)
  Receive Date: 20091210
  Receipt Date: 20091123
  Transmission Date: 20100525
  Serious: No
  Sender: FDA-Public Use
  Company Number: B0603528A

PATIENT
  Age: 8 Year
  Sex: Male

DRUGS (1)
  1. RELENZA [Suspect]
     Indication: INFLUENZA
     Dosage: 20MG TWICE PER DAY
     Route: 055
     Dates: start: 20091109

REACTIONS (1)
  - OVERDOSE [None]
